FAERS Safety Report 20119395 (Version 2)
Quarter: 2022Q2

REPORT INFORMATION
  Report Type: Spontaneous
  Country: CA (occurrence: CA)
  Receive Date: 20211126
  Receipt Date: 20220606
  Transmission Date: 20220720
  Serious: Yes (Other)
  Sender: FDA-Public Use
  Company Number: CA-SA-SAC20211123001487

PATIENT
  Sex: Male

DRUGS (2)
  1. LEFLUNOMIDE [Suspect]
     Active Substance: LEFLUNOMIDE
     Indication: Arthritis
     Dosage: UNK
  2. TOFACITINIB CITRATE [Suspect]
     Active Substance: TOFACITINIB CITRATE
     Indication: Arthritis
     Dosage: UNK

REACTIONS (6)
  - Erythema elevatum diutinum [Unknown]
  - Neuropathy peripheral [Unknown]
  - Migraine [Unknown]
  - Vasculitic rash [Unknown]
  - Vasculitis [Unknown]
  - Drug ineffective [Unknown]
